FAERS Safety Report 10236864 (Version 1)
Quarter: 2014Q2

REPORT INFORMATION
  Report Type: Spontaneous
  Country: US (occurrence: US)
  Receive Date: 20140613
  Receipt Date: 20140613
  Transmission Date: 20141212
  Serious: Yes (Other)
  Sender: FDA-Public Use
  Company Number: US-PFIZER INC-2014161083

PATIENT
  Age: 53 Year
  Sex: Female

DRUGS (19)
  1. XELJANZ [Suspect]
     Indication: RHEUMATOID ARTHRITIS
     Dosage: 5 MG, 2X/DAY
     Route: 048
     Dates: start: 201308
  2. XANAX [Concomitant]
     Dosage: UNK
  3. SYNTHROID [Concomitant]
     Dosage: UNK
  4. PROVIGIL [Concomitant]
     Dosage: UNK
  5. PLAVIX [Concomitant]
     Dosage: UNK
  6. LISINOPRIL [Concomitant]
     Dosage: UNK
  7. ARAVA [Concomitant]
     Dosage: UNK
  8. PREMARIN [Concomitant]
     Dosage: UNK
  9. CRESTOR [Concomitant]
     Dosage: UNK
  10. DILANTIN [Concomitant]
     Dosage: UNK
  11. PROVERA [Concomitant]
     Dosage: UNK
  12. LEXAPRO [Concomitant]
     Dosage: UNK
  13. SINGULAIR [Concomitant]
     Dosage: UNK
  14. IMITREX [Concomitant]
     Dosage: UNK
  15. AMOXICILLIN [Concomitant]
     Dosage: UNK
  16. ASA [Concomitant]
     Dosage: UNK
  17. PERCOCET [Concomitant]
     Dosage: UNK
  18. SKELAXIN [Concomitant]
     Dosage: UNK
  19. MIRAPEX [Concomitant]
     Dosage: UNK

REACTIONS (2)
  - Psoriatic arthropathy [Not Recovered/Not Resolved]
  - Exostosis [Unknown]
